FAERS Safety Report 19127114 (Version 1)
Quarter: 2021Q2

REPORT INFORMATION
  Report Type: Spontaneous
  Country: US (occurrence: US)
  Receive Date: 20210413
  Receipt Date: 20210413
  Transmission Date: 20210717
  Serious: Yes (Life-Threatening, Other)
  Sender: FDA-Public Use
  Company Number: None

PATIENT
  Age: 61 Year
  Sex: Female
  Weight: 85.5 kg

DRUGS (1)
  1. VENLAFAXINE HCL [Suspect]
     Active Substance: VENLAFAXINE HYDROCHLORIDE
     Indication: DEPRESSION
     Dosage: ?          QUANTITY:1 CAPSULE(S);?
     Route: 048
     Dates: start: 20210407, end: 20210408

REACTIONS (12)
  - Tremor [None]
  - Dyskinesia [None]
  - Myalgia [None]
  - Headache [None]
  - Vision blurred [None]
  - Tic [None]
  - Swollen tongue [None]
  - Abdominal pain upper [None]
  - Renal pain [None]
  - Feeling abnormal [None]
  - Nausea [None]
  - Swelling [None]

NARRATIVE: CASE EVENT DATE: 20210407
